FAERS Safety Report 18813484 (Version 6)
Quarter: 2021Q4

REPORT INFORMATION
  Report Type: Report from Study
  Country: None (occurrence: CO)
  Receive Date: 20210201
  Receipt Date: 20211001
  Transmission Date: 20220304
  Serious: Yes (Disabling)
  Sender: FDA-Public Use
  Company Number: CO-ABBVIE-21K-036-3753378-00

PATIENT
  Age: 52 Year
  Sex: Female

DRUGS (5)
  1. HUMIRA [Suspect]
     Active Substance: ADALIMUMAB
     Indication: Rheumatoid arthritis
     Route: 058
     Dates: start: 20180727, end: 20210109
  2. HUMIRA [Suspect]
     Active Substance: ADALIMUMAB
     Route: 058
     Dates: start: 2021
  3. HUMIRA [Suspect]
     Active Substance: ADALIMUMAB
     Indication: Rheumatoid arthritis
     Route: 058
     Dates: start: 2021
  4. METHOTREXATE [Concomitant]
     Active Substance: METHOTREXATE
     Indication: Rheumatoid arthritis
     Route: 048
  5. METHOTREXATE [Concomitant]
     Active Substance: METHOTREXATE
     Route: 048

REACTIONS (24)
  - Burning sensation [Recovering/Resolving]
  - Gastroenteritis viral [Recovered/Resolved]
  - Ear infection [Recovering/Resolving]
  - Oxygen saturation decreased [Recovering/Resolving]
  - Weight decreased [Recovering/Resolving]
  - Ear swelling [Recovered/Resolved]
  - Gastrointestinal tract irritation [Not Recovered/Not Resolved]
  - Malaise [Recovering/Resolving]
  - Immunodeficiency [Recovering/Resolving]
  - Pneumonitis [Recovering/Resolving]
  - Vertigo [Recovered/Resolved]
  - Inflammation [Recovering/Resolving]
  - Arthritis [Not Recovered/Not Resolved]
  - Ear inflammation [Recovered/Resolved]
  - Pain [Recovering/Resolving]
  - COVID-19 [Recovered/Resolved with Sequelae]
  - Pain [Recovering/Resolving]
  - Back pain [Recovered/Resolved]
  - Back pain [Not Recovered/Not Resolved]
  - Pain [Recovered/Resolved]
  - Rheumatoid arthritis [Not Recovered/Not Resolved]
  - Gastritis [Recovering/Resolving]
  - Discouragement [Recovering/Resolving]
  - Product administered at inappropriate site [Unknown]

NARRATIVE: CASE EVENT DATE: 20201113
